FAERS Safety Report 8869806 (Version 2)
Quarter: 2012Q4

REPORT INFORMATION
  Report Type: 
  Country: JP (occurrence: JP)
  Receive Date: 20121028
  Receipt Date: 20121107
  Transmission Date: 20130627
  Serious: Yes (Death, Hospitalization)
  Sender: FDA-Public Use
  Company Number: JP-JNJFOC-20121010778

PATIENT
  Age: 78 Year
  Sex: Male
  Weight: 72 kg

DRUGS (22)
  1. REMICADE [Suspect]
     Indication: RHEUMATOID ARTHRITIS
     Route: 042
     Dates: start: 20120723, end: 201207
  2. REMICADE [Suspect]
     Indication: RHEUMATOID ARTHRITIS
     Route: 042
     Dates: start: 20120528
  3. REMICADE [Suspect]
     Indication: RHEUMATOID ARTHRITIS
     Route: 042
     Dates: start: 20120326
  4. REMICADE [Suspect]
     Indication: RHEUMATOID ARTHRITIS
     Route: 042
     Dates: start: 20111212
  5. REMICADE [Suspect]
     Indication: RHEUMATOID ARTHRITIS
     Route: 042
     Dates: start: 20111114
  6. REMICADE [Suspect]
     Indication: RHEUMATOID ARTHRITIS
     Route: 042
     Dates: start: 20111031
  7. REMICADE [Suspect]
     Indication: RHEUMATOID ARTHRITIS
     Route: 042
     Dates: start: 20120130
  8. METHOTREXATE [Suspect]
     Indication: RHEUMATOID ARTHRITIS
     Dosage: 3 tablets twice weekly
     Route: 048
  9. FOLIAMIN [Suspect]
     Indication: PROPHYLAXIS
     Dosage: 1 tablet once weekly
     Route: 048
  10. LOXONIN [Concomitant]
     Route: 048
  11. SOLON [Concomitant]
     Dosage: 150 DF
     Route: 048
  12. PREDONINE [Concomitant]
     Route: 048
     Dates: start: 201002
  13. RHEUMATREX [Concomitant]
     Route: 048
     Dates: start: 201007
  14. HARNAL [Concomitant]
     Route: 048
  15. DEPAS [Concomitant]
     Route: 048
  16. RIMATIL [Concomitant]
     Route: 048
     Dates: start: 200605
  17. MICARDIS [Concomitant]
     Route: 048
  18. TOLEDOMIN [Concomitant]
     Route: 048
  19. ACINON [Concomitant]
     Route: 048
  20. GASMOTIN [Concomitant]
     Route: 048
  21. PRORENAL [Concomitant]
     Route: 048
  22. ITOROL [Concomitant]
     Route: 048

REACTIONS (5)
  - Pleural effusion [Fatal]
  - Hepatic enzyme increased [Unknown]
  - Respiratory failure [Fatal]
  - Dehydration [Unknown]
  - Altered state of consciousness [Unknown]
